FAERS Safety Report 8830187 (Version 1)
Quarter: 2012Q4

REPORT INFORMATION
  Report Type: Spontaneous
  Country: US (occurrence: None)
  Receive Date: 20121004
  Receipt Date: 20121004
  Transmission Date: 20130627
  Serious: Yes (Hospitalization)
  Sender: FDA-Public Use
  Company Number: 2012/145

PATIENT
  Age: 45 Year
  Sex: Male

DRUGS (7)
  1. DIVALPROEX SODIUM [Suspect]
     Indication: FRONTAL LOBE EPILEPSY
  2. LAMOTRIGINE [Concomitant]
  3. RISPERIDONE [Concomitant]
  4. VITAMIN B1 [Concomitant]
  5. VITAMIN D3 [Concomitant]
  6. TOPIRAMATE [Concomitant]
  7. LORAZEPAM [Concomitant]

REACTIONS (5)
  - Mental status changes [None]
  - Convulsion [None]
  - Ataxia [None]
  - Dysarthria [None]
  - Slow response to stimuli [None]
